FAERS Safety Report 10333819 (Version 2)
Quarter: 2014Q3

REPORT INFORMATION
  Report Type: Report from Study
  Country: US (occurrence: US)
  Receive Date: 20140723
  Receipt Date: 20140806
  Transmission Date: 20150326
  Serious: Yes (Other)
  Sender: FDA-Public Use
  Company Number: US-BIOGENIDEC-2014BI071999

PATIENT
  Sex: Female

DRUGS (1)
  1. AVONEX [Suspect]
     Active Substance: INTERFERON BETA-1A
     Indication: MULTIPLE SCLEROSIS
     Route: 030
     Dates: start: 20131125

REACTIONS (8)
  - Anger [Unknown]
  - Flushing [Unknown]
  - Non-Hodgkin^s lymphoma metastatic [Unknown]
  - Fatigue [Unknown]
  - Depression [Unknown]
  - Aggression [Unknown]
  - Dysgraphia [Not Recovered/Not Resolved]
  - Dry mouth [Not Recovered/Not Resolved]
